FAERS Safety Report 8095992-6 (Version None)
Quarter: 2012Q1

REPORT INFORMATION
  Report Type: 
  Country: None (occurrence: None)
  Receive Date: 20120129
  Receipt Date: 20111227
  Transmission Date: 20120608
  Serious: No
  Sender: FDA-Public Use
  Company Number: US-ABBOTT-11P-163-0886965-00

PATIENT
  Age: 49 Year
  Sex: Female

DRUGS (11)
  1. GENERIC EFFEXOR [Concomitant]
     Indication: DEPRESSION
  2. HUMIRA [Suspect]
     Indication: RHEUMATOID ARTHRITIS
     Dates: start: 20111205
  3. OMEPRAZOLE [Concomitant]
     Indication: PROPHYLAXIS
  4. KLONOPIN [Concomitant]
     Indication: ANXIETY
  5. PREDNISONE TAB [Concomitant]
     Indication: RHEUMATOID ARTHRITIS
  6. IBUPROFEN [Concomitant]
     Indication: ARTHRALGIA
     Dosage: AS REQUIRED
  7. KLONOPIN [Concomitant]
     Indication: DEPRESSION
     Dosage: AS REQUIRED
  8. ADDERALL 5 [Concomitant]
     Indication: FATIGUE
  9. MELATONIN [Concomitant]
     Indication: INSOMNIA
     Dosage: AT BEDTIME
  10. LISINOPRIL [Concomitant]
     Indication: HYPERTENSION
  11. ULTRAM [Concomitant]
     Indication: ARTHRALGIA

REACTIONS (9)
  - NAUSEA [None]
  - HEADACHE [None]
  - ARTHRALGIA [None]
  - FATIGUE [None]
  - DYSPNOEA [None]
  - CHEST DISCOMFORT [None]
  - HYPERHIDROSIS [None]
  - VOMITING [None]
  - FEELING COLD [None]
